FAERS Safety Report 17925226 (Version 2)
Quarter: 2020Q2

REPORT INFORMATION
  Report Type: Spontaneous
  Country: US (occurrence: US)
  Receive Date: 20200622
  Receipt Date: 20200625
  Transmission Date: 20200714
  Serious: Yes (Death, Other)
  Sender: FDA-Public Use
  Company Number: US-GILEAD-2020-0473427

PATIENT
  Age: 74 Year
  Sex: Female
  Weight: 102 kg

DRUGS (16)
  1. FENTANYL. [Concomitant]
     Active Substance: FENTANYL
  2. HEPARIN [Concomitant]
     Active Substance: HEPARIN SODIUM
  3. PIPERACILLIN/TAZOBACTAM [Concomitant]
     Active Substance: PIPERACILLIN SODIUM\TAZOBACTAM SODIUM
  4. MIDAZOLAM. [Concomitant]
     Active Substance: MIDAZOLAM
  5. PROPOFOL. [Concomitant]
     Active Substance: PROPOFOL
  6. REMDESIVIR. [Suspect]
     Active Substance: REMDESIVIR
     Indication: COVID-19
     Dosage: 200 MG, QD
     Route: 042
     Dates: start: 20200609, end: 20200610
  7. LANTUS [Concomitant]
     Active Substance: INSULIN GLARGINE
  8. INSULIN LISPRO [Concomitant]
     Active Substance: INSULIN LISPRO
  9. LEVOTHYROXINE. [Concomitant]
     Active Substance: LEVOTHYROXINE
  10. CEFEPIME [Concomitant]
     Active Substance: CEFEPIME HYDROCHLORIDE
  11. EPOPROSTENOL. [Concomitant]
     Active Substance: EPOPROSTENOL
  12. SODIUM BICARBONATE. [Concomitant]
     Active Substance: SODIUM BICARBONATE
  13. AZITHROMYCIN ANHYDROUS. [Concomitant]
     Active Substance: AZITHROMYCIN ANHYDROUS
  14. ENOXAPARIN [Concomitant]
     Active Substance: ENOXAPARIN
  15. NOREPINEPHRINE. [Concomitant]
     Active Substance: NOREPINEPHRINE
  16. REMDESIVIR. [Suspect]
     Active Substance: REMDESIVIR
     Dosage: 100 MG, QD
     Route: 042
     Dates: start: 20200609, end: 20200610

REACTIONS (3)
  - Blood creatinine increased [Not Recovered/Not Resolved]
  - Glomerular filtration rate decreased [Unknown]
  - Death [Fatal]

NARRATIVE: CASE EVENT DATE: 20200611
